FAERS Safety Report 4608712-1 (Version None)
Quarter: 2005Q1

REPORT INFORMATION
  Report Type: 
  Country: None (occurrence: None)
  Receive Date: 20050315
  Receipt Date: 20050302
  Transmission Date: 20050727
  Serious: Yes (Other)
  Sender: FDA-Public Use
  Company Number: JP-ROCHE-397548

PATIENT
  Age: 83 Year
  Sex: Female

DRUGS (2)
  1. TAMIFLU [Suspect]
     Indication: INFLUENZA
     Route: 048
     Dates: start: 20050221, end: 20050225
  2. HALCION [Concomitant]
     Route: 048

REACTIONS (1)
  - THROMBOCYTOPENIA [None]
